FAERS Safety Report 6235831-9 (Version None)
Quarter: 2009Q2

REPORT INFORMATION
  Report Type: 
  Country: None (occurrence: None)
  Receive Date: 20090617
  Receipt Date: 20090617
  Transmission Date: 20091009
  Serious: No
  Sender: FDA-Public Use
  Company Number: None

PATIENT
  Age: 53 Year
  Sex: Male
  Weight: 127.0072 kg

DRUGS (1)
  1. ZICAM NASAL GEL MATRIXX [Suspect]
     Indication: NASOPHARYNGITIS
     Dosage: APPLIED LOCALLY 4 TO 6 HOURS NASAL
     Route: 045
     Dates: start: 20081107, end: 20081108

REACTIONS (2)
  - AGEUSIA [None]
  - ANOSMIA [None]
